FAERS Safety Report 21583034 (Version 1)
Quarter: 2022Q4

REPORT INFORMATION
  Report Type: Report from Study
  Country: US (occurrence: US)
  Receive Date: 20221111
  Receipt Date: 20221111
  Transmission Date: 20230113
  Serious: Yes (Other)
  Sender: FDA-Public Use
  Company Number: US-ABBVIE-4184446

PATIENT
  Sex: Female

DRUGS (1)
  1. HUMIRA [Suspect]
     Active Substance: ADALIMUMAB
     Indication: Crohn^s disease
     Dosage: CITRATE FREE
     Route: 058

REACTIONS (8)
  - Surgery [Unknown]
  - Hypertrophy [Recovering/Resolving]
  - Pain [Unknown]
  - Post procedural complication [Unknown]
  - Unevaluable event [Unknown]
  - Sleep disorder [Unknown]
  - Memory impairment [Unknown]
  - Breast enlargement [Recovering/Resolving]

NARRATIVE: CASE EVENT DATE: 20210101
